FAERS Safety Report 23705081 (Version 1)
Quarter: 2024Q2

REPORT INFORMATION
  Report Type: Spontaneous
  Country: HR (occurrence: HR)
  Receive Date: 20240404
  Receipt Date: 20240404
  Transmission Date: 20240716
  Serious: Yes (Hospitalization, Other)
  Sender: FDA-Public Use
  Company Number: HR-JGLPROD-SafetyCase001764

PATIENT
  Age: 87 Year
  Sex: Male

DRUGS (4)
  1. SIMVASTATIN [Interacting]
     Active Substance: SIMVASTATIN
     Dosage: UNK
     Route: 065
  2. DABIGATRAN [Interacting]
     Active Substance: DABIGATRAN
     Dosage: 110 MILLIGRAM, QOD
     Route: 065
  3. METILDIGOXIN [Interacting]
     Active Substance: METILDIGOXIN
     Route: 065
  4. INVESTIGATIONAL PRODUCT [Concomitant]
     Active Substance: INVESTIGATIONAL PRODUCT
     Dosage: UNK
     Route: 065

REACTIONS (3)
  - Drug level decreased [Recovered/Resolved]
  - Drug interaction [Recovered/Resolved]
  - Cerebrovascular accident [Recovered/Resolved]
